FAERS Safety Report 6515515-X (Version None)
Quarter: 2009Q4

REPORT INFORMATION
  Report Type: 
  Country: None (occurrence: None)
  Receive Date: 20091223
  Receipt Date: 20091217
  Transmission Date: 20100525
  Serious: Yes (Hospitalization)
  Sender: FDA-Public Use
  Company Number: NL-ROCHE-675766

PATIENT
  Weight: 56 kg

DRUGS (10)
  1. CAPECITABINE [Suspect]
     Indication: GASTRIC CANCER
     Dosage: LAST DOSE PRIOR TO EVENT: 11 SEPTEMBER  2009.FROM DAY 1-14 EVERY 3 WEEKS (AS PER PROTOCOL).
     Route: 048
     Dates: start: 20090403
  2. EPIRUBICIN [Suspect]
     Indication: GASTRIC CANCER
     Dosage: AS PER PROTOCOL FREQUENCY EVERY 3 WEEKS IMMEDIATE PRIOR TO THE CISPLATIN.
     Route: 042
     Dates: start: 20090403, end: 20090928
  3. CISPLATIN [Suspect]
     Indication: GASTRIC CANCER
     Dosage: AS PER PROTOCOL FREQUENCY EVERY 3 WEEKS WITH HYDRATION.
     Route: 042
     Dates: start: 20090403, end: 20090928
  4. SPIRIVA [Concomitant]
     Route: 065
  5. ASCAL [Concomitant]
     Dosage: FREQUENCY REPORTED AS 1X1
     Route: 048
     Dates: start: 20090903
  6. ASCAL [Concomitant]
     Route: 048
  7. SELOKEEN [Concomitant]
     Dosage: FREQUENCY REPORTED AS 1X1
     Route: 048
     Dates: start: 20090903
  8. PLAVIX [Concomitant]
     Dosage: FREQUENCY REPORTED AS 1X1
     Route: 048
     Dates: start: 20090903
  9. PANTOPRAZOLE [Concomitant]
     Route: 048
  10. FRAXIPARINE [Concomitant]
     Route: 058

REACTIONS (3)
  - DYSPHAGIA [None]
  - PYREXIA [None]
  - VOMITING [None]
